FAERS Safety Report 8577757-1 (Version None)
Quarter: 2012Q3

REPORT INFORMATION
  Report Type: 
  Country: None (occurrence: None)
  Receive Date: 20120808
  Receipt Date: 20120727
  Transmission Date: 20120928
  Serious: Yes (Hospitalization)
  Sender: FDA-Public Use
  Company Number: US-BIOGENIDEC-2012BI017124

PATIENT
  Age: 39 Year
  Sex: Female
  Weight: 46 kg

DRUGS (19)
  1. DULERA [Concomitant]
     Route: 055
  2. PRILOSEC OTC [Concomitant]
     Route: 048
  3. VIOKASE 16 [Concomitant]
     Route: 048
  4. DURAGESIC-100 [Concomitant]
     Route: 062
  5. VITAMIN D [Concomitant]
     Route: 048
  6. ATIVAN [Concomitant]
     Route: 048
  7. NYSTOP [Concomitant]
     Route: 061
  8. DESYREL [Concomitant]
     Route: 048
  9. CELEXA [Concomitant]
     Route: 048
  10. PROVENTIL [Concomitant]
     Route: 055
  11. TYSABRI [Suspect]
     Indication: CROHN'S DISEASE
     Route: 042
     Dates: start: 20110810, end: 20120323
  12. PHENERGAN HCL [Concomitant]
     Route: 048
  13. OXYCODONE HCL [Concomitant]
     Route: 048
  14. PROTONIX [Concomitant]
     Route: 048
  15. DALTEPARIN SODIUM [Concomitant]
     Route: 058
     Dates: end: 20120604
  16. OXYCONTIN [Concomitant]
     Route: 048
  17. SINGULAIR [Concomitant]
     Route: 048
  18. DESYREL [Concomitant]
     Indication: INSOMNIA
     Route: 048
  19. TPN [Concomitant]
     Route: 042

REACTIONS (1)
  - PYREXIA [None]
